FAERS Safety Report 16879190 (Version 3)
Quarter: 2020Q1

REPORT INFORMATION
  Report Type: Spontaneous
  Country: JP (occurrence: JP)
  Receive Date: 20191003
  Receipt Date: 20200130
  Transmission Date: 20200409
  Serious: Yes (Other)
  Sender: FDA-Public Use
  Company Number: JP-BEH-2019107405

PATIENT
  Age: 25 Year
  Sex: Male
  Weight: 104.1 kg

DRUGS (5)
  1. DEPAS [Concomitant]
     Route: 048
  2. TRIAZOLAM. [Concomitant]
     Active Substance: TRIAZOLAM
     Route: 048
  3. IDELVION [Suspect]
     Active Substance: COAGULATION FACTOR IX RECOMBINANT HUMAN
     Indication: FACTOR IX DEFICIENCY
     Dosage: UNK
     Route: 042
     Dates: start: 20180905
  4. IDELVION [Suspect]
     Active Substance: COAGULATION FACTOR IX RECOMBINANT HUMAN
     Indication: FACTOR IX DEFICIENCY
     Dosage: UNK
     Route: 042
     Dates: start: 20180905
  5. LEXOTAN [Concomitant]
     Active Substance: BROMAZEPAM
     Route: 048

REACTIONS (1)
  - Type 2 diabetes mellitus [Recovering/Resolving]

NARRATIVE: CASE EVENT DATE: 201906
